FAERS Safety Report 8803806 (Version 2)
Quarter: 2012Q4

REPORT INFORMATION
  Report Type: 
  Country: PH (occurrence: PH)
  Receive Date: 20120923
  Receipt Date: 20121011
  Transmission Date: 20130627
  Serious: Yes (Hospitalization, Other)
  Sender: FDA-Public Use
  Company Number: PH-009507513-1209PHL007920

PATIENT
  Age: 64 Year
  Sex: Female
  Weight: 68 kg

DRUGS (6)
  1. INVANZ [Suspect]
     Indication: ABDOMINAL INFECTION
     Dosage: 1 g, qd
     Route: 042
     Dates: start: 20120711, end: 20120713
  2. PANTOPRAZOLE [Concomitant]
     Indication: PROPHYLAXIS
     Dosage: 40 mg, qd
     Route: 042
     Dates: start: 20120711, end: 20120715
  3. TRAMADOL HYDROCHLORIDE [Concomitant]
     Dosage: 50 mg, qd
     Route: 042
     Dates: start: 20120711, end: 20120715
  4. HYDROCORTISONE [Concomitant]
     Dosage: 200 mg, qd
     Route: 042
     Dates: start: 20120711, end: 20120712
  5. FUROSEMIDE [Concomitant]
     Dosage: 40 mg, qd
     Route: 042
     Dates: start: 20120711, end: 20120715
  6. METRONIDAZOLE [Concomitant]
     Dosage: 500 mg, qd
     Route: 042
     Dates: start: 20120711, end: 20120715

REACTIONS (4)
  - Cerebral infarction [Unknown]
  - Gaze palsy [Recovered/Resolved]
  - Mastoiditis [Unknown]
  - Myocardial ischaemia [Unknown]
